FAERS Safety Report 5077071-5 (Version None)
Quarter: 2006Q3

REPORT INFORMATION
  Report Type: 
  Country: None (occurrence: None)
  Receive Date: 20060810
  Receipt Date: 20040402
  Transmission Date: 20061208
  Serious: No
  Sender: FDA-Public Use
  Company Number: US-GLAXOSMITHKLINE-A0506336A

PATIENT
  Sex: Female
  Weight: 56.1 kg

DRUGS (1)
  1. PAXIL [Suspect]
     Indication: ANXIETY
     Route: 048
     Dates: start: 20001204

REACTIONS (1)
  - DRUG WITHDRAWAL SYNDROME [None]
